FAERS Safety Report 8557207-1 (Version None)
Quarter: 2012Q3

REPORT INFORMATION
  Report Type: 
  Country: None (occurrence: None)
  Receive Date: 20120720
  Receipt Date: 20110707
  Transmission Date: 20120928
  Serious: Yes (Hospitalization)
  Sender: FDA-Public Use
  Company Number: KV200800728

PATIENT
  Age: 52 Year
  Sex: Female
  Weight: 105.7 kg

DRUGS (25)
  1. MORPHINE SULFATE [Suspect]
     Indication: PAIN
     Dosage: ORAL
     Route: 048
     Dates: start: 20080923
  2. PAXIL [Concomitant]
  3. COLACE (DOCUSATE SODIUM) [Concomitant]
  4. DIAZEPAM [Concomitant]
  5. CYCLOBENZAPRINE [Concomitant]
  6. MORPHINE SULDATE [Suspect]
     Indication: BACK PAIN
     Dosage: 60 MG, TID, ORAL, 60 MG, BID, ORAL
     Route: 048
     Dates: start: 20080423, end: 20080501
  7. ALPRAZOLAM [Concomitant]
  8. NAPROSYN /00256201/ (NAPROXEN) [Concomitant]
  9. CLINDAMYCIN [Concomitant]
  10. ESTRATEST [Concomitant]
  11. NEURONTIN [Concomitant]
  12. ZOCOR [Concomitant]
  13. ALBUTEROL [Concomitant]
  14. COMBIVENT /01033501/ (IPRATROPIUM BROMIDE, SALBUTAMOL) [Concomitant]
  15. PREDNISONE TAB [Concomitant]
  16. PERCOCET [Concomitant]
  17. SENOKOT /00142201/ (SENNA ALEXANDRINA) [Concomitant]
  18. ONDANSETRON [Concomitant]
  19. LIDOCAINE [Concomitant]
  20. MORPHINE SULFATE [Suspect]
     Indication: PAIN
     Dosage: 1-2 TABLETS, Q6-8 HRS., ORAL
     Route: 048
     Dates: start: 20080818, end: 20080827
  21. HYDROCODONE BITARTRATE AND ACETAMINOPHEN (HYDROCODONE BITARTRATE, PARA [Concomitant]
  22. MILK OF MAGNESIA TAB [Concomitant]
  23. VARENICLINE (VARENICLINE) [Concomitant]
  24. PLAVIX [Concomitant]
  25. PROCHLORPERAZINE MALEATE [Concomitant]

REACTIONS (35)
  - HYPOXIA [None]
  - WEIGHT DECREASED [None]
  - ANXIETY [None]
  - OVERDOSE [None]
  - BACK PAIN [None]
  - DYSPNOEA EXERTIONAL [None]
  - LUNG NEOPLASM MALIGNANT [None]
  - HEADACHE [None]
  - OEDEMA PERIPHERAL [None]
  - PALPITATIONS [None]
  - DYSPNOEA [None]
  - NAUSEA [None]
  - DECREASED APPETITE [None]
  - PALLOR [None]
  - INSOMNIA [None]
  - HYPOTENSION [None]
  - TOOTH EXTRACTION [None]
  - PARANEOPLASTIC SYNDROME [None]
  - FATIGUE [None]
  - PAIN IN EXTREMITY [None]
  - POLYCYTHAEMIA [None]
  - CLUBBING [None]
  - ARTHRALGIA [None]
  - VOMITING [None]
  - HAEMOPTYSIS [None]
  - ASTHENIA [None]
  - URINARY TRACT INFECTION [None]
  - GRAVITATIONAL OEDEMA [None]
  - MALAISE [None]
  - POLYURIA [None]
  - CHEST PAIN [None]
  - PARAESTHESIA [None]
  - HYPOAESTHESIA [None]
  - INTERMITTENT CLAUDICATION [None]
  - PAIN [None]
